FAERS Safety Report 7917210-9 (Version None)
Quarter: 2011Q4

REPORT INFORMATION
  Report Type: 
  Country: None (occurrence: None)
  Receive Date: 20111116
  Receipt Date: 20111108
  Transmission Date: 20120403
  Serious: Yes (Hospitalization, Disabling)
  Sender: FDA-Public Use
  Company Number: CN-ROCHE-1010569

PATIENT
  Age: 40 Year
  Sex: Female

DRUGS (1)
  1. CEFTRIAXONE [Suspect]
     Indication: UPPER RESPIRATORY TRACT INFECTION
     Route: 041
     Dates: start: 20100127, end: 20100127

REACTIONS (6)
  - ACID BASE BALANCE ABNORMAL [None]
  - NERVOUS SYSTEM DISORDER [None]
  - HYPOKALAEMIA [None]
  - ANAPHYLACTIC SHOCK [None]
  - COMA [None]
  - APALLIC SYNDROME [None]
